FAERS Safety Report 6530487-X (Version None)
Quarter: 2010Q1

REPORT INFORMATION
  Report Type: 
  Country: None (occurrence: None)
  Receive Date: 20100106
  Receipt Date: 20100106
  Transmission Date: 20100710
  Serious: Yes (Hospitalization)
  Sender: FDA-Public Use
  Company Number: None

PATIENT
  Sex: Female
  Weight: 86.1834 kg

DRUGS (5)
  1. AMBIEN [Suspect]
     Indication: SEPSIS
     Dosage: IN VEIN
  2. AMBIEN [Suspect]
     Indication: SURGERY
     Dosage: IN VEIN
  3. PREDNISONE [Suspect]
     Indication: KIDNEY INFECTION
     Dosage: 40 MG (LOST SIGHT IN RT. EYE) MONTHS CORNEA BURST 3 TIMES
  4. PREDNISONE [Suspect]
     Indication: SEPSIS
     Dosage: 40 MG (LOST SIGHT IN RT. EYE) MONTHS CORNEA BURST 3 TIMES
  5. CYCLOSPORINE [Suspect]

REACTIONS (4)
  - AMNESIA [None]
  - HALLUCINATIONS, MIXED [None]
  - LOSS OF CONSCIOUSNESS [None]
  - PAIN [None]
